FAERS Safety Report 4294740-5 (Version None)
Quarter: 2004Q1

REPORT INFORMATION
  Report Type: 
  Country: None (occurrence: None)
  Receive Date: 20040211
  Receipt Date: 20040127
  Transmission Date: 20041129
  Serious: Yes (Death, Other)
  Sender: FDA-Public Use
  Company Number: JP_040202579

PATIENT
  Age: 72 Year
  Sex: Male

DRUGS (4)
  1. ONCOVIN [Suspect]
     Indication: NATURAL KILLER-CELL LYMPHOBLASTIC LYMPHOMA
     Dates: start: 20010801
  2. CYCLOPHOSPHAMIDE [Concomitant]
  3. DOXORUBICIN HCL [Concomitant]
  4. PREDNISOLONE [Concomitant]

REACTIONS (6)
  - BONE MARROW DEPRESSION [None]
  - MASS [None]
  - MYALGIA [None]
  - PYREXIA [None]
  - RENAL DISORDER [None]
  - SKIN LESION [None]
